FAERS Safety Report 6150605-5 (Version None)
Quarter: 2009Q2

REPORT INFORMATION
  Report Type: 
  Country: None (occurrence: None)
  Receive Date: 20090409
  Receipt Date: 20090330
  Transmission Date: 20091009
  Serious: Yes (Disabling, Other)
  Sender: FDA-Public Use
  Company Number: AU-WYE-G03411909

PATIENT
  Sex: Female

DRUGS (3)
  1. EFFEXOR XR [Suspect]
     Indication: DEPRESSION
     Dosage: 70 MG DAILY
     Dates: start: 20080101
  2. EFFEXOR XR [Suspect]
     Dosage: 37.5MG
  3. EFFEXOR XR [Suspect]
     Dosage: 37.5MG

REACTIONS (24)
  - ABNORMAL DREAMS [None]
  - AFFECT LABILITY [None]
  - AGITATION [None]
  - BURNING SENSATION [None]
  - DIARRHOEA [None]
  - DIZZINESS [None]
  - DRUG DEPENDENCE [None]
  - DRUG WITHDRAWAL SYNDROME [None]
  - FATIGUE [None]
  - FEELING ABNORMAL [None]
  - HYPOKINESIA [None]
  - INSOMNIA [None]
  - IRRITABILITY [None]
  - LETHARGY [None]
  - MALAISE [None]
  - NAUSEA [None]
  - PAIN [None]
  - PARAESTHESIA [None]
  - PRURITUS [None]
  - PYREXIA [None]
  - SUICIDAL IDEATION [None]
  - UNEVALUABLE EVENT [None]
  - VERTIGO [None]
  - VIRAL INFECTION [None]
